FAERS Safety Report 24907696 (Version 1)
Quarter: 2025Q1

REPORT INFORMATION
  Report Type: Spontaneous
  Country: US (occurrence: US)
  Receive Date: 20250131
  Receipt Date: 20250131
  Transmission Date: 20250408
  Serious: No
  Sender: MERCK
  Company Number: US-009507513-2501USA007177

PATIENT
  Sex: Female
  Weight: 56.2 kg

DRUGS (19)
  1. WINREVAIR [Suspect]
     Active Substance: SOTATERCEPT-CSRK
     Indication: Product used for unknown indication
     Route: 065
  2. TYVASO [Suspect]
     Active Substance: TREPROSTINIL
     Indication: Pulmonary arterial hypertension
     Dosage: 72 MICROGRAM, QID
     Dates: start: 20240109
  3. CRESTOR [Concomitant]
     Active Substance: ROSUVASTATIN CALCIUM
  4. FLUOXETINE HYDROCHLORIDE [Concomitant]
     Active Substance: FLUOXETINE HYDROCHLORIDE
  5. BUMETANIDE [Concomitant]
     Active Substance: BUMETANIDE
  6. HYDROXYZINE HYDROCHLORIDE [Concomitant]
     Active Substance: HYDROXYZINE HYDROCHLORIDE
  7. ALBUTEROL SULFATE [Concomitant]
     Active Substance: ALBUTEROL SULFATE
  8. POTASSIUM CHLORIDE [Concomitant]
     Active Substance: POTASSIUM CHLORIDE
  9. SILDENAFIL CITRATE [Concomitant]
     Active Substance: SILDENAFIL CITRATE
  10. ALLEGRA D [FEXOFENADINE HYDROCHLORIDE;PSEUDOEPHEDRINE HYDROCHLORIDE] [Concomitant]
  11. TRAMADOL HCL [Concomitant]
     Active Substance: TRAMADOL HYDROCHLORIDE
  12. CELLCEPT [Concomitant]
     Active Substance: MYCOPHENOLATE MOFETIL
  13. LEVOTHYROXINE SODIUM [Concomitant]
     Active Substance: LEVOTHYROXINE SODIUM
  14. OXYGEN [Concomitant]
     Active Substance: OXYGEN
  15. BENADRYL [Concomitant]
     Active Substance: DIPHENHYDRAMINE HYDROCHLORIDE
  16. OMEPRAZOLE [Concomitant]
     Active Substance: OMEPRAZOLE
  17. AMBIEN [Concomitant]
     Active Substance: ZOLPIDEM TARTRATE
  18. VITAMIN D3 [Concomitant]
     Active Substance: CHOLECALCIFEROL
  19. ACETAMINOPHEN [Concomitant]
     Active Substance: ACETAMINOPHEN

REACTIONS (1)
  - Gingival bleeding [Unknown]
